FAERS Safety Report 4337201-7 (Version None)
Quarter: 2004Q2

REPORT INFORMATION
  Report Type: 
  Country: None (occurrence: None)
  Receive Date: 20040412
  Receipt Date: 20040412
  Transmission Date: 20050107
  Serious: Yes (Other)
  Sender: FDA-Public Use
  Company Number: None

PATIENT
  Age: 48 Year
  Sex: Male
  Weight: 105.2 kg

DRUGS (2)
  1. METHADONE HCL [Suspect]
     Indication: PAIN
     Dosage: 10 MG, QID ORAL
     Route: 048
     Dates: start: 20031022, end: 20031201
  2. METHADONE HCL [Concomitant]

REACTIONS (1)
  - OEDEMA [None]
